FAERS Safety Report 11100184 (Version 1)
Quarter: 2015Q2

REPORT INFORMATION
  Report Type: Spontaneous
  Country: US (occurrence: None)
  Receive Date: 20150507
  Receipt Date: 20150507
  Transmission Date: 20150821
  Serious: Yes (Hospitalization)
  Sender: FDA-Public Use
  Company Number: None

PATIENT
  Age: 53 Year
  Sex: Female

DRUGS (1)
  1. INH [Suspect]
     Active Substance: ISONIAZID
     Dates: start: 20140214, end: 20140416

REACTIONS (3)
  - Drug-induced liver injury [None]
  - Weight increased [None]
  - Non-alcoholic steatohepatitis [None]

NARRATIVE: CASE EVENT DATE: 20140419
